FAERS Safety Report 16091905 (Version 2)
Quarter: 2019Q2

REPORT INFORMATION
  Report Type: Spontaneous
  Country: ES (occurrence: ES)
  Receive Date: 20190319
  Receipt Date: 20190521
  Transmission Date: 20190711
  Serious: Yes (Death, Other)
  Sender: FDA-Public Use
  Company Number: ES-BRISTOL-MYERS SQUIBB COMPANY-BMS-2019-024027

PATIENT
  Age: 46 Year
  Sex: Female

DRUGS (1)
  1. NIVOLUMAB [Suspect]
     Active Substance: NIVOLUMAB
     Indication: HEPATIC CANCER
     Dosage: UNAVAILABLE
     Route: 065
     Dates: start: 20190124

REACTIONS (2)
  - Product use in unapproved indication [Unknown]
  - Hepatic failure [Fatal]

NARRATIVE: CASE EVENT DATE: 201903
